FAERS Safety Report 14301123 (Version 2)
Quarter: 2017Q4

REPORT INFORMATION
  Report Type: Other
  Country: IT (occurrence: IT)
  Receive Date: 20171219
  Receipt Date: 20171229
  Transmission Date: 20180321
  Serious: Yes (Other)
  Sender: FDA-Public Use
  Company Number: IT-APOTEX-2017AP022834

PATIENT
  Age: 79 Year
  Sex: Female

DRUGS (12)
  1. ENOXAPARIN SODIUM SOLUTION FOR INJECTION [Concomitant]
     Indication: PRODUCT USED FOR UNKNOWN INDICATION
     Dosage: UNK
     Route: 065
  2. PAROXETINE. [Suspect]
     Active Substance: PAROXETINE
     Indication: ANXIETY
     Dosage: 20 MG, QD
     Route: 048
  3. VERAPAMIL HYDROCHLORIDE. [Concomitant]
     Active Substance: VERAPAMIL HYDROCHLORIDE
     Indication: PRODUCT USED FOR UNKNOWN INDICATION
     Dosage: UNK
     Route: 065
  4. LEVOTHYROXINE SODIUM. [Concomitant]
     Active Substance: LEVOTHYROXINE SODIUM
     Indication: HYPOTHYROIDISM
     Dosage: 75 ?G, QD
     Route: 065
     Dates: start: 20160101
  5. LORAZEPAM. [Concomitant]
     Active Substance: LORAZEPAM
     Indication: PRODUCT USED FOR UNKNOWN INDICATION
     Dosage: UNK
     Route: 065
  6. CLARITROMICINA DOC GENERICI [Interacting]
     Active Substance: CLARITHROMYCIN
     Indication: PNEUMONITIS
     Dosage: 500 MG, QD
     Route: 048
     Dates: start: 20171010
  7. LANSOPRAZOLE. [Interacting]
     Active Substance: LANSOPRAZOLE
     Indication: PROPHYLAXIS AGAINST GASTROINTESTINAL ULCER
     Dosage: 15 MEQ, QD
     Route: 048
  8. MIRTAZAPINE. [Interacting]
     Active Substance: MIRTAZAPINE
     Indication: DEPRESSION
     Dosage: 30 MG, QD
     Route: 048
  9. MONTELUKAST SODIUM. [Concomitant]
     Active Substance: MONTELUKAST SODIUM
     Indication: PRODUCT USED FOR UNKNOWN INDICATION
     Dosage: UNK
     Route: 065
  10. METHYLPREDNISOLONE. [Concomitant]
     Active Substance: METHYLPREDNISOLONE
     Indication: PRODUCT USED FOR UNKNOWN INDICATION
     Dosage: UNK
     Route: 065
  11. CEFTRIAXONE. [Interacting]
     Active Substance: CEFTRIAXONE
     Indication: PNEUMONITIS
     Dosage: 2 G, QD
     Route: 042
     Dates: start: 20171010
  12. FORMOTEROL FUMARATE [Concomitant]
     Active Substance: FORMOTEROL FUMARATE
     Indication: PRODUCT USED FOR UNKNOWN INDICATION
     Dosage: UNK
     Route: 065

REACTIONS (2)
  - Drug interaction [Unknown]
  - Electrocardiogram QT prolonged [Unknown]

NARRATIVE: CASE EVENT DATE: 20171013
